FAERS Safety Report 12190009 (Version 1)
Quarter: 2016Q1

REPORT INFORMATION
  Report Type: Spontaneous
  Country: US (occurrence: US)
  Receive Date: 20160318
  Receipt Date: 20160318
  Transmission Date: 20160526
  Serious: Yes (Other)
  Sender: FDA-Public Use
  Company Number: PHEH2016US005876

PATIENT
  Sex: Female

DRUGS (1)
  1. EVEROLIMUS [Suspect]
     Active Substance: EVEROLIMUS
     Indication: LIVER TRANSPLANT
     Dosage: UNK UNK, Q12H
     Route: 048

REACTIONS (1)
  - Hepatopulmonary syndrome [Not Recovered/Not Resolved]

NARRATIVE: CASE EVENT DATE: 20160308
